FAERS Safety Report 8973880 (Version 3)
Quarter: 2013Q2

REPORT INFORMATION
  Report Type: Spontaneous
  Country: CA (occurrence: CA)
  Receive Date: 20121218
  Receipt Date: 20130604
  Transmission Date: 20140414
  Serious: Yes (Hospitalization)
  Sender: FDA-Public Use
  Company Number: CA-GLAXOSMITHKLINE-A0981730A

PATIENT
  Age: 79 Year
  Sex: Female
  Weight: 57.3 kg

DRUGS (10)
  1. ADVAIR [Suspect]
     Indication: CHRONIC OBSTRUCTIVE PULMONARY DISEASE
     Dosage: 1PUFF TWICE PER DAY
     Route: 055
     Dates: start: 201201
  2. COUMADIN [Concomitant]
     Dosage: 6.5MG PER DAY
     Route: 065
  3. METOPROLOL [Concomitant]
     Route: 065
  4. FUROSEMIDE [Concomitant]
     Dosage: 40MG PER DAY
     Route: 065
  5. DIGOXIN [Concomitant]
     Dosage: .125MG PER DAY
     Route: 065
  6. RISEDRONATE [Concomitant]
     Dosage: 35MG WEEKLY
     Route: 065
  7. VITAMIN D3 [Concomitant]
  8. VITAMIN C [Concomitant]
  9. CALCIUM [Concomitant]
  10. SPIRIVA [Concomitant]

REACTIONS (14)
  - Wound infection [Unknown]
  - Sepsis [Unknown]
  - Tooth abscess [Unknown]
  - Restlessness [Unknown]
  - Sleep disorder [Recovered/Resolved]
  - Restless legs syndrome [Unknown]
  - Eye pruritus [Not Recovered/Not Resolved]
  - Halo vision [Not Recovered/Not Resolved]
  - Eye discharge [Not Recovered/Not Resolved]
  - Dysphonia [Not Recovered/Not Resolved]
  - Pain in extremity [Not Recovered/Not Resolved]
  - Erythema [Not Recovered/Not Resolved]
  - Scab [Not Recovered/Not Resolved]
  - Impaired healing [Not Recovered/Not Resolved]
